FAERS Safety Report 19944091 (Version 2)
Quarter: 2021Q4

REPORT INFORMATION
  Report Type: Other
  Country: US (occurrence: US)
  Receive Date: 20211011
  Receipt Date: 20211029
  Transmission Date: 20220303
  Serious: Yes (Hospitalization)
  Sender: FDA-Public Use
  Company Number: US-COVIS PHARMA GMBH-2021COV23797

PATIENT
  Age: 34 Year
  Sex: Female

DRUGS (1)
  1. MAKENA [Suspect]
     Active Substance: HYDROXYPROGESTERONE CAPROATE
     Indication: Premature delivery
     Dosage: 275MG/1.1ML
     Route: 058
     Dates: start: 20210726, end: 20210809

REACTIONS (2)
  - COVID-19 [Unknown]
  - Adverse event [Unknown]
